FAERS Safety Report 11649292 (Version 3)
Quarter: 2015Q4

REPORT INFORMATION
  Report Type: Report from Study
  Country: US (occurrence: US)
  Receive Date: 20151021
  Receipt Date: 20151105
  Transmission Date: 20160304
  Serious: Yes (Hospitalization, Other)
  Sender: FDA-Public Use
  Company Number: US-GILEAD-2015-0177356

PATIENT
  Age: 65 Year
  Sex: Male

DRUGS (1)
  1. AMBRISENTAN [Suspect]
     Active Substance: AMBRISENTAN
     Indication: PRODUCT USED FOR UNKNOWN INDICATION
     Dosage: 10 MG, QD
     Route: 065
     Dates: start: 20120706

REACTIONS (4)
  - Wrong technique in product usage process [Unknown]
  - Cardiac arrest [Unknown]
  - Myocardial infarction [Unknown]
  - Dysphagia [Unknown]

NARRATIVE: CASE EVENT DATE: 20151012
